FAERS Safety Report 12093126 (Version 1)
Quarter: 2016Q1

REPORT INFORMATION
  Report Type: Spontaneous
  Country: US (occurrence: US)
  Receive Date: 20160219
  Receipt Date: 20160219
  Transmission Date: 20160526
  Serious: No
  Sender: FDA-Public Use
  Company Number: US-TEVA-584663USA

PATIENT

DRUGS (1)
  1. AMPHETAMINE W/DEXTROAMPHETAMINE [Suspect]
     Active Substance: AMPHETAMINE SULFATE\DEXTROAMPHETAMINE
     Dosage: 40 MILLIGRAM DAILY;
     Route: 065

REACTIONS (17)
  - Dry mouth [Unknown]
  - Product taste abnormal [Unknown]
  - Tremor [Unknown]
  - Malaise [Unknown]
  - Dysgeusia [Unknown]
  - Presyncope [Unknown]
  - Feeling jittery [Unknown]
  - Drug ineffective [Unknown]
  - Feeling hot [Unknown]
  - Product solubility abnormal [Unknown]
  - Disturbance in attention [Unknown]
  - Feeling abnormal [Unknown]
  - Attention deficit/hyperactivity disorder [Unknown]
  - Fatigue [Unknown]
  - Product colour issue [Unknown]
  - Dizziness [Unknown]
  - Muscle tightness [Unknown]
